FAERS Safety Report 8607992 (Version 3)
Quarter: 2013Q4

REPORT INFORMATION
  Report Type: Spontaneous
  Country: US (occurrence: US)
  Receive Date: 20120611
  Receipt Date: 20131129
  Transmission Date: 20140711
  Serious: Yes (Hospitalization)
  Sender: FDA-Public Use
  Company Number: US-ASTRAZENECA-2012SE35324

PATIENT
  Age: 61 Year
  Sex: Female
  Weight: 61.2 kg

DRUGS (25)
  1. NEXIUM [Suspect]
     Indication: DYSPEPSIA
     Route: 048
     Dates: start: 2006, end: 2013
  2. NEXIUM [Suspect]
     Indication: GASTRIC DISORDER
     Route: 048
     Dates: start: 2006, end: 2013
  3. NEXIUM [Suspect]
     Indication: DYSPEPSIA
     Route: 048
     Dates: start: 20061113
  4. NEXIUM [Suspect]
     Indication: GASTRIC DISORDER
     Route: 048
     Dates: start: 20061113
  5. GLYBURIDE/ METFORMIN [Concomitant]
     Indication: DIABETES MELLITUS
     Dosage: 5/500 MG, DAILY
     Route: 048
     Dates: start: 20100813
  6. TYDEODONE [Concomitant]
     Dosage: 5.500
  7. SIMVASTATIN [Concomitant]
     Dates: start: 20100813
  8. AMOXILINE [Concomitant]
  9. VICODINE [Concomitant]
     Dosage: 500
  10. FISH OIL [Concomitant]
  11. GABAPENTIN [Concomitant]
  12. MUCINEX [Concomitant]
  13. ASPIRIN [Concomitant]
  14. GENERLAC [Concomitant]
  15. COZAAR [Concomitant]
     Dates: start: 20100813
  16. ALENDRONATE SODIUM [Concomitant]
     Indication: OSTEOPOROSIS
     Route: 048
  17. LOSARTAN [Concomitant]
     Indication: BLOOD PRESSURE ABNORMAL
     Route: 048
  18. CYMBALTA [Concomitant]
     Indication: DEPRESSION
     Route: 048
  19. LYRICA [Concomitant]
     Indication: ARTHRALGIA
     Dosage: TID
     Route: 048
  20. METHOCARBAMOL [Concomitant]
     Route: 048
  21. PANTOPRAZOLE [Concomitant]
     Route: 048
  22. CYCLOBENZAPRINE [Concomitant]
  23. DEOXEMETHASOME [Concomitant]
     Dates: start: 20100813
  24. TRAMADOL [Concomitant]
     Dosage: QD-QID PM
  25. TRAZODONE [Concomitant]
     Indication: INSOMNIA
     Route: 048
     Dates: start: 20091218

REACTIONS (7)
  - Fall [Unknown]
  - Osteoporosis [Unknown]
  - Road traffic accident [Unknown]
  - Ankle fracture [Unknown]
  - Back disorder [Unknown]
  - Traumatic fracture [Unknown]
  - Arthralgia [Unknown]
